FAERS Safety Report 6679590 (Version 3)
Quarter: 2017Q1

REPORT INFORMATION
  Report Type: Spontaneous
  Country: JP (occurrence: JP)
  Receive Date: 20080624
  Receipt Date: 20170208
  Transmission Date: 20170429
  Serious: Yes (Life-Threatening, Disabling, Other)
  Sender: FDA-Public Use
  Company Number: JP-BRISTOL-MYERS SQUIBB COMPANY-14234322

PATIENT
  Age: 65 Year
  Sex: Female

DRUGS (2)
  1. PARAPLATIN [Suspect]
     Active Substance: CARBOPLATIN
     Indication: OVARIAN CANCER
     Dosage: THERAPY INITIATED ON 07MAY03.
     Route: 042
     Dates: start: 20030827, end: 20030827
  2. TAXOL [Suspect]
     Active Substance: PACLITAXEL
     Indication: OVARIAN CANCER
     Dosage: THERAPY DATES: 07MAY03-27AUG03 (RECEIVED 245MG).
     Route: 042
     Dates: start: 200401, end: 200401

REACTIONS (1)
  - Large intestine perforation [Recovered/Resolved with Sequelae]

NARRATIVE: CASE EVENT DATE: 20040209
